FAERS Safety Report 8914841 (Version 1)
Quarter: 2012Q4

REPORT INFORMATION
  Report Type: 
  Country: GB (occurrence: GB)
  Receive Date: 20121119
  Receipt Date: 20121119
  Transmission Date: 20130627
  Serious: Yes (Other)
  Sender: FDA-Public Use
  Company Number: GB-ASTRAZENECA-2012SE85319

PATIENT
  Age: 24471 Day
  Sex: Female

DRUGS (1)
  1. LIDOCAINE HYDROCHLORIDE [Suspect]
     Indication: BIOPSY BONE MARROW
     Dates: start: 20120808

REACTIONS (2)
  - Pulse absent [Recovered/Resolved]
  - Loss of consciousness [Recovered/Resolved]
